FAERS Safety Report 6519443-5 (Version None)
Quarter: 2009Q4

REPORT INFORMATION
  Report Type: 
  Country: None (occurrence: None)
  Receive Date: 20091228
  Receipt Date: 20091218
  Transmission Date: 20100525
  Serious: Yes (Other)
  Sender: FDA-Public Use
  Company Number: US-ASTRAZENECA-2009SE25958

PATIENT
  Sex: Female

DRUGS (3)
  1. ATACAND HCT [Suspect]
     Dosage: 16/12.5 MG
     Route: 048
  2. CRESTOR [Concomitant]
  3. NEXIUM [Concomitant]

REACTIONS (7)
  - DIZZINESS [None]
  - DRY MOUTH [None]
  - FATIGUE [None]
  - MYALGIA [None]
  - NEOPLASM MALIGNANT [None]
  - SWELLING FACE [None]
  - WEIGHT INCREASED [None]
